FAERS Safety Report 9370396 (Version 2)
Quarter: 2013Q3

REPORT INFORMATION
  Report Type: Report from Study
  Country: US (occurrence: US)
  Receive Date: 20130626
  Receipt Date: 20130703
  Transmission Date: 20140515
  Serious: Yes (Other)
  Sender: FDA-Public Use
  Company Number: US-ABBOTT-13P-163-1106581-00

PATIENT
  Age: 66 Year
  Sex: Female

DRUGS (5)
  1. HUMIRA [Suspect]
     Indication: PSORIATIC ARTHROPATHY
     Dates: start: 20130216, end: 20130525
  2. LOSARTAN [Concomitant]
     Indication: HYPERTENSION
  3. LASIX [Concomitant]
     Indication: HYPERTENSION
  4. POTASSIUM [Concomitant]
     Indication: MINERAL SUPPLEMENTATION
  5. CRESTOR [Concomitant]
     Indication: BLOOD CHOLESTEROL INCREASED

REACTIONS (6)
  - Anaemia [Not Recovered/Not Resolved]
  - Psoriasis [Unknown]
  - Back pain [Unknown]
  - Oedema peripheral [Unknown]
  - Erythema [Unknown]
  - Foot fracture [Unknown]
